FAERS Safety Report 17179666 (Version 2)
Quarter: 2019Q4

REPORT INFORMATION
  Report Type: Spontaneous
  Country: US (occurrence: US)
  Receive Date: 20191219
  Receipt Date: 20191227
  Transmission Date: 20200122
  Serious: No
  Sender: FDA-Public Use
  Company Number: US-UNITED THERAPEUTICS-UNT-2019-020608

PATIENT
  Sex: Female
  Weight: 78.91 kg

DRUGS (4)
  1. WARFARIN [Concomitant]
     Active Substance: WARFARIN
     Indication: PRODUCT USED FOR UNKNOWN INDICATION
     Dosage: UNK
     Route: 065
  2. REMODULIN [Suspect]
     Active Substance: TREPROSTINIL
     Indication: PULMONARY ARTERIAL HYPERTENSION
     Dosage: 0.0145 ?G/KG, CONTINUING
     Route: 058
     Dates: start: 20191127
  3. REMODULIN [Suspect]
     Active Substance: TREPROSTINIL
     Indication: PULMONARY ARTERIAL HYPERTENSION
     Dosage: 0.007 ?G/KG, CONTINUING
     Route: 058
     Dates: start: 20191127
  4. SILDENAFIL CITRATE. [Concomitant]
     Active Substance: SILDENAFIL CITRATE
     Indication: PRODUCT USED FOR UNKNOWN INDICATION
     Dosage: UNK
     Route: 065

REACTIONS (11)
  - Infusion site erythema [Unknown]
  - Headache [Not Recovered/Not Resolved]
  - Dyspnoea [Unknown]
  - Infusion site pain [Unknown]
  - Chills [Unknown]
  - Infusion site warmth [Unknown]
  - Fall [Recovered/Resolved]
  - Infusion site swelling [Unknown]
  - Diarrhoea [Unknown]
  - Dizziness postural [Not Recovered/Not Resolved]
  - Pneumonia [Unknown]

NARRATIVE: CASE EVENT DATE: 2019
